FAERS Safety Report 12580789 (Version 1)
Quarter: 2016Q3

REPORT INFORMATION
  Report Type: Spontaneous
  Country: US (occurrence: US)
  Receive Date: 20160721
  Receipt Date: 20160721
  Transmission Date: 20161109
  Serious: Yes (Hospitalization)
  Sender: FDA-Public Use
  Company Number: US-BRAINTREE LABORATORIES-160535-1

PATIENT
  Age: 70 Year
  Sex: Male
  Weight: 72.57 kg

DRUGS (1)
  1. SUPREP BOWEL PREP [Suspect]
     Active Substance: MAGNESIUM SULFATE\POTASSIUM SULFATE\SODIUM SULFATE
     Indication: COLONOSCOPY
     Dosage: 2 X 6 OZ. BOTTLE
     Route: 048
     Dates: start: 20160710, end: 20160710

REACTIONS (9)
  - Vision blurred [None]
  - Heart rate increased [None]
  - Atrial fibrillation [None]
  - Heart rate irregular [None]
  - Blood pressure increased [None]
  - Headache [None]
  - Palpitations [None]
  - Dehydration [None]
  - Dizziness [None]

NARRATIVE: CASE EVENT DATE: 20160711
